FAERS Safety Report 7842198-9 (Version None)
Quarter: 2011Q4

REPORT INFORMATION
  Report Type: 
  Country: None (occurrence: None)
  Receive Date: 20111019
  Receipt Date: 20111012
  Transmission Date: 20120403
  Serious: Yes (Other)
  Sender: FDA-Public Use
  Company Number: 2011SP048395

PATIENT
  Age: 56 Year
  Sex: Male
  Weight: 78 kg

DRUGS (4)
  1. REMERON [Suspect]
     Indication: PRODUCT USED FOR UNKNOWN INDICATION
     Dosage: 1 DF;QD;PO
     Route: 048
  2. RESTORIL [Concomitant]
  3. DIVALPROEX SODIUM [Concomitant]
  4. XANAX [Concomitant]

REACTIONS (3)
  - AGITATION [None]
  - ANGER [None]
  - PERSONALITY CHANGE [None]
